FAERS Safety Report 7979506-4 (Version None)
Quarter: 2011Q4

REPORT INFORMATION
  Report Type: 
  Country: None (occurrence: None)
  Receive Date: 20111214
  Receipt Date: 20111208
  Transmission Date: 20120403
  Serious: Yes (Other)
  Sender: FDA-Public Use
  Company Number: PHHY2011AU097508

PATIENT
  Sex: Female
  Weight: 47.2 kg

DRUGS (5)
  1. ZOLEDRONOC ACID [Suspect]
     Indication: OSTEOPOROSIS
     Dosage: 5 MG, UNK
     Route: 042
     Dates: start: 20110811
  2. SPIRONOLACTONE [Concomitant]
     Route: 048
     Dates: start: 20110627
  3. OXYCODONE HCL [Concomitant]
  4. PANTOPRAZOLE [Concomitant]
     Dosage: 40 MG, UNK
     Route: 048
     Dates: start: 20071217
  5. AMENEY [Concomitant]
     Indication: ANXIETY

REACTIONS (6)
  - NAUSEA [None]
  - VOMITING [None]
  - BACK PAIN [None]
  - INFLUENZA LIKE ILLNESS [None]
  - CHEST PAIN [None]
  - DIARRHOEA [None]
